FAERS Safety Report 7519659-5 (Version None)
Quarter: 2011Q2

REPORT INFORMATION
  Report Type: 
  Country: None (occurrence: None)
  Receive Date: 20110602
  Receipt Date: 20110524
  Transmission Date: 20111010
  Serious: Yes (Other)
  Sender: FDA-Public Use
  Company Number: B0722005A

PATIENT
  Age: 7 Decade
  Sex: Male

DRUGS (2)
  1. PAXIL [Suspect]
     Indication: DEPRESSION
     Dosage: 20MG PER DAY
     Route: 048
  2. CITALOPRAM HYDROBROMIDE [Suspect]
     Route: 065

REACTIONS (1)
  - PARKINSONISM [None]
